FAERS Safety Report 17721238 (Version 1)
Quarter: 2020Q2

REPORT INFORMATION
  Report Type: Spontaneous
  Country: US (occurrence: US)
  Receive Date: 20200429
  Receipt Date: 20200429
  Transmission Date: 20200714
  Serious: No
  Sender: FDA-Public Use
  Company Number: US-GLENMARK PHARMACEUTICALS-2019GMK044356

PATIENT

DRUGS (4)
  1. LIDOCAINE OINTMENT USP 5% [Suspect]
     Active Substance: LIDOCAINE
     Indication: PAIN IN EXTREMITY
     Dosage: UNK (EVERY 4 HOURS)
     Route: 061
     Dates: start: 20191111
  2. GABAPENTIN. [Concomitant]
     Active Substance: GABAPENTIN
     Indication: PRODUCT USED FOR UNKNOWN INDICATION
     Dosage: UNK
     Route: 065
  3. LIDOCAINE OINTMENT USP 5% [Suspect]
     Active Substance: LIDOCAINE
     Indication: GENITAL PAIN
  4. LEVOTHYROXINE. [Concomitant]
     Active Substance: LEVOTHYROXINE
     Indication: THYROID DISORDER
     Dosage: UNK
     Route: 065

REACTIONS (5)
  - Drug effective for unapproved indication [Unknown]
  - Product packaging difficult to open [Unknown]
  - Product packaging quantity issue [Unknown]
  - Wrong technique in product usage process [Unknown]
  - Product dispensing error [Unknown]

NARRATIVE: CASE EVENT DATE: 20191111
